FAERS Safety Report 5510084-5 (Version None)
Quarter: 2007Q4

REPORT INFORMATION
  Report Type: 
  Country: None (occurrence: None)
  Receive Date: 20071108
  Receipt Date: 20070206
  Transmission Date: 20080405
  Serious: No
  Sender: FDA-Public Use
  Company Number: US-ABBOTT-07P-163-0358880-00

PATIENT
  Sex: Female
  Weight: 74.91 kg

DRUGS (1)
  1. TARKA 2 MG/180 MG [Suspect]
     Indication: HYPERTENSION
     Dosage: 2/180 MG
     Dates: start: 20050714, end: 20070129

REACTIONS (1)
  - URINARY TRACT INFECTION [None]
